FAERS Safety Report 21022143 (Version 1)
Quarter: 2022Q2

REPORT INFORMATION
  Report Type: Report from Study
  Country: IT (occurrence: IT)
  Receive Date: 20220629
  Receipt Date: 20220629
  Transmission Date: 20220721
  Serious: Yes (Hospitalization)
  Sender: FDA-Public Use
  Company Number: IT-MYLANLABS-2022M1048658

PATIENT

DRUGS (2)
  1. VENLAFAXINE [Interacting]
     Active Substance: VENLAFAXINE HYDROCHLORIDE
     Indication: Major depression
     Dosage: 150 MILLIGRAM
     Route: 065
  2. PALIPERIDONE [Interacting]
     Active Substance: PALIPERIDONE
     Indication: Major depression
     Dosage: 3 MILLIGRAM (DEFINED DAILY DOSE: 6MG)
     Route: 065

REACTIONS (2)
  - Drug interaction [Unknown]
  - Muscle rigidity [Unknown]
